FAERS Safety Report 6480758-0 (Version None)
Quarter: 2009Q4

REPORT INFORMATION
  Report Type: 
  Country: None (occurrence: None)
  Receive Date: 20091123
  Receipt Date: 20090730
  Transmission Date: 20100525
  Serious: Yes (Hospitalization)
  Sender: FDA-Public Use
  Company Number: 8043694

PATIENT
  Age: 35 Year
  Sex: Female
  Weight: 90.9 kg

DRUGS (2)
  1. CIMZIA [Suspect]
     Indication: CROHN'S DISEASE
     Dosage: 400 MG SC
     Route: 058
     Dates: start: 20081001, end: 20090101
  2. BIRTH CONTROL PILL [Concomitant]

REACTIONS (2)
  - ARTHRALGIA [None]
  - GASTROINTESTINAL OBSTRUCTION [None]
